FAERS Safety Report 7792382-8 (Version None)
Quarter: 2011Q4

REPORT INFORMATION
  Report Type: 
  Country: None (occurrence: None)
  Receive Date: 20111003
  Receipt Date: 20110914
  Transmission Date: 20120403
  Serious: Yes (Hospitalization)
  Sender: FDA-Public Use
  Company Number: US-ELI_LILLY_AND_COMPANY-US201109005771

PATIENT

DRUGS (1)
  1. HUMALOG [Suspect]

REACTIONS (1)
  - BLOOD GLUCOSE ABNORMAL [None]
